FAERS Safety Report 4951994-7 (Version None)
Quarter: 2006Q1

REPORT INFORMATION
  Report Type: 
  Country: None (occurrence: None)
  Receive Date: 20060320
  Receipt Date: 20060307
  Transmission Date: 20060701
  Serious: Yes (Other)
  Sender: FDA-Public Use
  Company Number: 2006P1000147

PATIENT
  Age: 69 Year
  Sex: Male
  Weight: 70 kg

DRUGS (4)
  1. RETEPLASE                 (RETEPLASE) [Suspect]
     Indication: ACUTE MYOCARDIAL INFARCTION
     Dosage: 5 IU;X1; IVBOL
     Route: 040
     Dates: start: 20050216, end: 20050216
  2. RETEPLASE                 (RETEPLASE) [Suspect]
     Indication: ACUTE MYOCARDIAL INFARCTION
     Dosage: 5 IU;X1; IVBOL
     Route: 040
     Dates: start: 20050216, end: 20050216
  3. ABCIXIMAB (ABCIXIMAB) [Suspect]
     Indication: ACUTE MYOCARDIAL INFARCTION
     Dosage: 8.8 ML;1X;IVBOL
     Route: 040
     Dates: start: 20050216, end: 20050216
  4. ABCIXIMAB (ABCIXIMAB) [Suspect]
     Dosage: QH; IV
     Route: 042
     Dates: start: 20050216, end: 20050216

REACTIONS (2)
  - CORONARY ARTERY DISEASE [None]
  - MYOCARDIAL ISCHAEMIA [None]
